FAERS Safety Report 22736451 (Version 3)
Quarter: 2024Q1

REPORT INFORMATION
  Report Type: Spontaneous
  Country: JP (occurrence: JP)
  Receive Date: 20230721
  Receipt Date: 20240215
  Transmission Date: 20240410
  Serious: Yes (Other)
  Sender: FDA-Public Use
  Company Number: JP-GLAXOSMITHKLINE-JP2023JPN099107

PATIENT

DRUGS (1)
  1. LAMICTAL [Suspect]
     Active Substance: LAMOTRIGINE
     Dosage: UNK

REACTIONS (12)
  - Drug reaction with eosinophilia and systemic symptoms [Unknown]
  - Fulminant type 1 diabetes mellitus [Unknown]
  - Dermatitis exfoliative generalised [Unknown]
  - Cytomegalovirus infection reactivation [Unknown]
  - Rash [Recovering/Resolving]
  - Human herpesvirus 6 infection reactivation [Unknown]
  - Thirst [Unknown]
  - Polydipsia [Unknown]
  - Impaired insulin secretion [Unknown]
  - Macule [Unknown]
  - Skin exfoliation [Unknown]
  - Liver disorder [Unknown]
